FAERS Safety Report 22962915 (Version 2)
Quarter: 2024Q1

REPORT INFORMATION
  Report Type: Spontaneous
  Country: IN (occurrence: IN)
  Receive Date: 20230920
  Receipt Date: 20240221
  Transmission Date: 20240410
  Serious: Yes (Death, Other)
  Sender: FDA-Public Use
  Company Number: IN-PFIZER INC-PV202300143255

PATIENT
  Age: 68 Year
  Sex: Female
  Weight: 64.4 kg

DRUGS (6)
  1. PALBOCICLIB [Suspect]
     Active Substance: PALBOCICLIB
     Dosage: 125 MG
     Route: 048
     Dates: start: 20230602
  2. PALBOCICLIB [Suspect]
     Active Substance: PALBOCICLIB
     Dosage: 100 MG
     Route: 048
  3. PALBOCICLIB [Suspect]
     Active Substance: PALBOCICLIB
     Dosage: 100 MG, 1X/DAY(1-0-0)
     Route: 048
  4. LETROZOLE [Concomitant]
     Active Substance: LETROZOLE
     Dosage: UNK, 1X/DAY(1-0-0)
  5. OIDAL [Concomitant]
     Dosage: UNK, 1X/DAY (1-0-0)
  6. FOLICAP [Concomitant]
     Dosage: UNK, 1X/DAY (1-0-0)

REACTIONS (5)
  - Death [Fatal]
  - Haemoglobin decreased [Unknown]
  - Hyperchlorhydria [Unknown]
  - White blood cell count increased [Unknown]
  - Back pain [Unknown]
